FAERS Safety Report 13259948 (Version 1)
Quarter: 2017Q1

REPORT INFORMATION
  Report Type: Spontaneous
  Country: CH (occurrence: CH)
  Receive Date: 20170222
  Receipt Date: 20170222
  Transmission Date: 20170428
  Serious: Yes (Death, Hospitalization, Other)
  Sender: FDA-Public Use
  Company Number: CH-ASTRAZENECA-2017SE17921

PATIENT
  Age: 23188 Day
  Sex: Male
  Weight: 69 kg

DRUGS (4)
  1. SEROQUEL [Suspect]
     Active Substance: QUETIAPINE FUMARATE
     Indication: BIPOLAR DISORDER
     Route: 048
     Dates: start: 201206, end: 20170126
  2. LEPONEX [Interacting]
     Active Substance: CLOZAPINE
     Indication: BIPOLAR DISORDER
     Route: 048
     Dates: end: 20170126
  3. LEPONEX [Interacting]
     Active Substance: CLOZAPINE
     Indication: BIPOLAR DISORDER
     Route: 048
  4. SEROQUEL [Interacting]
     Active Substance: QUETIAPINE FUMARATE
     Indication: BIPOLAR DISORDER
     Route: 048

REACTIONS (13)
  - Weight decreased [Unknown]
  - Left ventricular dysfunction [Unknown]
  - Drug interaction [Unknown]
  - Vasoplegia syndrome [Fatal]
  - Multiple organ dysfunction syndrome [Fatal]
  - Neuroleptic malignant syndrome [Unknown]
  - Parkinsonism [Unknown]
  - Cardio-respiratory arrest [Fatal]
  - Hypoxic-ischaemic encephalopathy [Fatal]
  - Cardiogenic shock [Fatal]
  - Brain oedema [Fatal]
  - Cognitive disorder [Unknown]
  - Influenza virus test positive [Unknown]

NARRATIVE: CASE EVENT DATE: 20120605
